FAERS Safety Report 7313496-2 (Version None)
Quarter: 2011Q1

REPORT INFORMATION
  Report Type: 
  Country: None (occurrence: None)
  Receive Date: 20110225
  Receipt Date: 20110215
  Transmission Date: 20110831
  Serious: No
  Sender: FDA-Public Use
  Company Number: US-PFIZER INC-2010135655

PATIENT
  Sex: Male

DRUGS (2)
  1. NORVASC [Suspect]
     Dosage: UNK MG, UNK
     Route: 048
     Dates: start: 20070101, end: 20100101
  2. HYDROCHLOROTHIAZIDE [Suspect]
     Dosage: UNK
     Route: 048
     Dates: end: 20100101

REACTIONS (1)
  - WHITE BLOOD CELL COUNT ABNORMAL [None]
